FAERS Safety Report 8775993 (Version 1)
Quarter: 2012Q4

REPORT INFORMATION
  Report Type: 
  Country: FR (occurrence: FR)
  Receive Date: 20120910
  Receipt Date: 20120910
  Transmission Date: 20130627
  Serious: Yes (Death, Hospitalization)
  Sender: FDA-Public Use
  Company Number: FR-CELGENEUS-056-21880-12083308

PATIENT
  Sex: Male
  Weight: 108 kg

DRUGS (3)
  1. REVLIMID [Suspect]
     Indication: MULTIPLE MYELOMA
     Route: 048
     Dates: start: 201104
  2. REVLIMID [Suspect]
     Dosage: 10 Milligram
     Route: 048
     Dates: start: 20110707
  3. LXPRIM [Concomitant]
     Indication: PAIN IN HIP
     Route: 065

REACTIONS (1)
  - Malignant neoplasm of unknown primary site [Fatal]
